FAERS Safety Report 6376173-0 (Version None)
Quarter: 2009Q3

REPORT INFORMATION
  Report Type: 
  Country: None (occurrence: None)
  Receive Date: 20090921
  Receipt Date: 20090910
  Transmission Date: 20100115
  Serious: Yes (Other)
  Sender: FDA-Public Use
  Company Number: GXKR2009TR09421

PATIENT
  Age: 45 Year
  Sex: Male

DRUGS (4)
  1. PREDNISOLONE [Suspect]
     Indication: CLUSTER HEADACHE
     Dosage: 80 MG, QD,; DECREASE BY 10MG/DAY EVERY 3 DAYS,
  2. ANALGESICS (NO INGREDIENTS/SUBSTANCES) [Concomitant]
  3. VERAPAMIL [Concomitant]
  4. SUMATRIPTAN SUCCINATE [Concomitant]

REACTIONS (2)
  - CHORIORETINOPATHY [None]
  - VISUAL ACUITY REDUCED [None]
